FAERS Safety Report 7860112-7 (Version None)
Quarter: 2011Q4

REPORT INFORMATION
  Report Type: 
  Country: None (occurrence: None)
  Receive Date: 20111027
  Receipt Date: 20111017
  Transmission Date: 20120403
  Serious: Yes (Other)
  Sender: FDA-Public Use
  Company Number: US-JNJFOC-20110107559

PATIENT
  Sex: Male
  Weight: 71.1 kg

DRUGS (8)
  1. HUMIRA [Concomitant]
     Dates: start: 20080619
  2. VICODIN [Concomitant]
  3. REMICADE [Suspect]
     Route: 042
     Dates: start: 20110414
  4. VORICONAZOLE [Concomitant]
  5. DIFFERIN [Concomitant]
  6. REMICADE [Suspect]
     Indication: INFLAMMATORY BOWEL DISEASE
     Route: 042
  7. ANTIBIOTICS [Suspect]
     Indication: INFLAMMATORY BOWEL DISEASE
  8. BENZACLIN [Concomitant]

REACTIONS (1)
  - ANAL ABSCESS [None]
